FAERS Safety Report 25923122 (Version 2)
Quarter: 2025Q4

REPORT INFORMATION
  Report Type: Spontaneous
  Country: EU (occurrence: EU)
  Receive Date: 20251015
  Receipt Date: 20251021
  Transmission Date: 20260117
  Serious: Yes (Life-Threatening, Other)
  Sender: AUROBINDO
  Company Number: EU-LRB-01086432

PATIENT
  Age: 52 Year
  Sex: Male
  Weight: 107 kg

DRUGS (3)
  1. ALENDRONIC ACID [Suspect]
     Active Substance: ALENDRONIC ACID
     Indication: Product used for unknown indication
     Dosage: 70 MILLIGRAM, EVERY WEEK (1X PER WEEK 1 STUK)
     Route: 048
     Dates: start: 20250912
  2. ORENCIA [Suspect]
     Active Substance: ABATACEPT
     Indication: Rheumatic disorder
     Dosage: 1 DOSAGE FORM, EVERY WEEK (1X PER WEEK)
     Route: 065
     Dates: start: 20250828
  3. DEXAMETHASONE [Suspect]
     Active Substance: DEXAMETHASONE
     Indication: Product used for unknown indication
     Dosage: UNK
     Route: 065

REACTIONS (2)
  - Loss of consciousness [Recovering/Resolving]
  - Withdrawal syndrome [Unknown]
